FAERS Safety Report 18475218 (Version 1)
Quarter: 2020Q4

REPORT INFORMATION
  Report Type: Report from Study
  Country: US (occurrence: US)
  Receive Date: 20201106
  Receipt Date: 20201106
  Transmission Date: 20210114
  Serious: Yes (Other)
  Sender: FDA-Public Use
  Company Number: US-JNJFOC-20201049587

PATIENT
  Age: 50 Year
  Sex: Female
  Weight: 140.74 kg

DRUGS (8)
  1. SPRAVATO [Suspect]
     Active Substance: ESKETAMINE
     Indication: DEPRESSION
     Dosage: 56 MG, 1 DOSE TOTAL
     Dates: start: 20200901, end: 20200901
  2. LITHIUM. [Concomitant]
     Active Substance: LITHIUM
  3. PROPRANOLOL [Concomitant]
     Active Substance: PROPRANOLOL HYDROCHLORIDE
     Indication: ARRHYTHMIA PROPHYLAXIS
  4. SPRAVATO [Suspect]
     Active Substance: ESKETAMINE
     Dosage: 84 MG, 7 DOSES TOTAL
     Dates: start: 20200911, end: 20201028
  5. VALIUM [Concomitant]
     Active Substance: DIAZEPAM
  6. AMITRIPTYLINE [Concomitant]
     Active Substance: AMITRIPTYLINE
  7. LUNESTA [Concomitant]
     Active Substance: ESZOPICLONE
  8. SALBUTAMOL [Concomitant]
     Active Substance: ALBUTEROL

REACTIONS (7)
  - Dyspnoea [Unknown]
  - Heart rate increased [Unknown]
  - Chest discomfort [Unknown]
  - Asthma [Unknown]
  - Speech disorder [Unknown]
  - Mixed anxiety and depressive disorder [Unknown]
  - Anxiety [Unknown]
